FAERS Safety Report 21989265 (Version 1)
Quarter: 2023Q1

REPORT INFORMATION
  Report Type: Spontaneous
  Country: US (occurrence: None)
  Receive Date: 20230210
  Receipt Date: 20230210
  Transmission Date: 20230418
  Serious: Yes (Hospitalization)
  Sender: FDA-Public Use
  Company Number: None

PATIENT
  Sex: Male

DRUGS (1)
  1. LENALIDOMIDE [Suspect]
     Active Substance: LENALIDOMIDE
     Indication: Plasma cell myeloma
     Dosage: OTHER FREQUENCY : 14 D ON, 7 D OFF;?
     Route: 048
     Dates: start: 20230131

REACTIONS (4)
  - Epistaxis [None]
  - Pneumonia [None]
  - Full blood count abnormal [None]
  - Chest discomfort [None]
